FAERS Safety Report 7443814-6 (Version None)
Quarter: 2011Q2

REPORT INFORMATION
  Report Type: 
  Country: None (occurrence: None)
  Receive Date: 20110428
  Receipt Date: 20090603
  Transmission Date: 20111010
  Serious: Yes (Other)
  Sender: FDA-Public Use
  Company Number: DE-GENENTECH-317524

PATIENT
  Age: 86 Year
  Sex: Female

DRUGS (2)
  1. LUCENTIS [Suspect]
     Indication: MACULAR DEGENERATION
     Route: 031
  2. AVASTIN [Suspect]
     Indication: MACULAR DEGENERATION

REACTIONS (4)
  - VISUAL ACUITY REDUCED [None]
  - RETINAL INJURY [None]
  - CARDIOVASCULAR DISORDER [None]
  - BLADDER DISORDER [None]
